FAERS Safety Report 17281260 (Version 1)
Quarter: 2020Q1

REPORT INFORMATION
  Report Type: Spontaneous
  Country: US (occurrence: US)
  Receive Date: 20200117
  Receipt Date: 20200117
  Transmission Date: 20200409
  Serious: Yes (Other)
  Sender: FDA-Public Use
  Company Number: US-TEVA-2020-US-1168688

PATIENT
  Age: 67 Year
  Sex: Female

DRUGS (2)
  1. BROVANA [Suspect]
     Active Substance: ARFORMOTEROL TARTRATE
     Indication: ASTHMA
     Dosage: FORM STRENGTH : UNKNOWN
     Route: 065
     Dates: start: 20191210, end: 20200107
  2. BUDESONIDE. [Suspect]
     Active Substance: BUDESONIDE
     Indication: ASTHMA
     Dosage: FORM STRENGTH: UNKNOWN
     Route: 055
     Dates: start: 20191210, end: 20200107

REACTIONS (8)
  - Malaise [Recovering/Resolving]
  - Vomiting [Unknown]
  - Depression [Unknown]
  - Depressed mood [Unknown]
  - Mood altered [Unknown]
  - Dizziness [Unknown]
  - Confusional state [Not Recovered/Not Resolved]
  - Memory impairment [Unknown]
